FAERS Safety Report 6941464-9 (Version None)
Quarter: 2010Q3

REPORT INFORMATION
  Report Type: 
  Country: None (occurrence: None)
  Receive Date: 20100825
  Receipt Date: 20100810
  Transmission Date: 20110219
  Serious: Yes (Hospitalization, Other)
  Sender: FDA-Public Use
  Company Number: JP-PFIZER INC-2010044364

PATIENT
  Age: 58 Year
  Sex: Male

DRUGS (2)
  1. SEIBULE [Suspect]
     Indication: TYPE 2 DIABETES MELLITUS
     Dosage: UNK
     Route: 048
     Dates: start: 20080601
  2. GLYBURIDE [Concomitant]
     Indication: TYPE 2 DIABETES MELLITUS
     Dosage: 1.25 MG, UNK
     Route: 048
     Dates: start: 19880101

REACTIONS (4)
  - ABDOMINAL PAIN LOWER [None]
  - MELAENA [None]
  - PNEUMATOSIS INTESTINALIS [None]
  - RECTAL HAEMORRHAGE [None]
